FAERS Safety Report 24161438 (Version 1)
Quarter: 2024Q3

REPORT INFORMATION
  Report Type: Spontaneous
  Country: GB (occurrence: GB)
  Receive Date: 20240801
  Receipt Date: 20240801
  Transmission Date: 20241017
  Serious: Yes (Other)
  Sender: CHEPLAPHARM
  Company Number: None

PATIENT
  Age: 38 Year

DRUGS (6)
  1. ORLISTAT [Suspect]
     Active Substance: ORLISTAT
     Dosage: DAILY DOSE: 360 MILLIGRAM
  2. CITALOPRAM [Concomitant]
     Active Substance: CITALOPRAM\CITALOPRAM HYDROBROMIDE
     Dosage: DAILY DOSE: 20 MILLIGRAM
  3. DILTIAZEM HYDROCHLORIDE [Concomitant]
     Active Substance: DILTIAZEM HYDROCHLORIDE
     Dosage: PT NOT TAKEN FOR OVER 1 MONTH. HAS NOT DISCUSSED THIS WITH GP THEREFORE HAVE LEFT PRESCRIBED FOR ...
  4. GAVISCON [Concomitant]
     Active Substance: ALUMINUM HYDROXIDE\MAGNESIUM CARBONATE
  5. LANSOPRAZOLE [Concomitant]
     Active Substance: LANSOPRAZOLE
     Dosage: EACH MORNING?DAILY DOSE: 30 MILLIGRAM
  6. GABAPENTIN [Concomitant]
     Active Substance: GABAPENTIN
     Dosage: TAKE ONE TODAY THEN ONE BD,THEN 1 TDS,GRADUALLY INCREASE AFTER 1 WEEK TO 2 TDS

REACTIONS (2)
  - Cholecystitis [Unknown]
  - Cholelithiasis [Unknown]
